FAERS Safety Report 8857923 (Version 1)
Quarter: 2012Q4

REPORT INFORMATION
  Report Type: 
  Country: US (occurrence: US)
  Receive Date: 20121024
  Receipt Date: 20121024
  Transmission Date: 20130627
  Serious: No
  Sender: FDA-Public Use
  Company Number: US-AMGEN-USASP2012003315

PATIENT
  Age: 61 Year
  Sex: Female
  Weight: 67.12 kg

DRUGS (12)
  1. ENBREL [Suspect]
     Indication: PRODUCT USED FOR UNKNOWN INDICATION
     Dosage: 50 mg, qwk
     Route: 058
  2. HYDROXYCHLOROQUINE [Concomitant]
     Dosage: 200 mg, UNK
  3. MULTIVITAMIN                       /00097801/ [Concomitant]
     Dosage: UNK
  4. LEVOXYL [Concomitant]
     Dosage: 100 mug, UNK
  5. ATENOLOL [Concomitant]
     Dosage: 100 mg, UNK
  6. FISH OIL [Concomitant]
     Dosage: UNK
  7. LOSARTAN POTASSIUM [Concomitant]
     Dosage: 100 mg, UNK
  8. MAGNESIUM [Concomitant]
     Dosage: UNK
  9. VITAMIN D /00107901/ [Concomitant]
     Dosage: 1000 IU, UNK
  10. CLONAZEPAM [Concomitant]
     Dosage: 1 mg, UNK
  11. BENADRYL                           /00000402/ [Concomitant]
     Dosage: 25 mg, UNK
  12. PROMETRIUM                         /00110701/ [Concomitant]
     Dosage: 100 mg, UNK

REACTIONS (2)
  - Glucose tolerance impaired [Unknown]
  - Tinnitus [Unknown]
